FAERS Safety Report 14790591 (Version 11)
Quarter: 2018Q3

REPORT INFORMATION
  Report Type: Report from Study
  Country: NL (occurrence: NL)
  Receive Date: 20180423
  Receipt Date: 20180918
  Transmission Date: 20181010
  Serious: Yes (Death, Hospitalization)
  Sender: FDA-Public Use
  Company Number: NL-ROCHE-2106879

PATIENT
  Age: 70 Year
  Sex: Female
  Weight: 57 kg

DRUGS (15)
  1. PIRFENIDONE. [Suspect]
     Active Substance: PIRFENIDONE
     Route: 048
     Dates: start: 20180205
  2. MORPHIN [Suspect]
     Active Substance: MORPHINE
     Indication: PRODUCT USED FOR UNKNOWN INDICATION
     Route: 065
  3. COLECALCIFEROL [Concomitant]
     Active Substance: CHOLECALCIFEROL
     Dosage: 50000 OTHER
     Route: 065
     Dates: end: 20180411
  4. PLACEBO [Suspect]
     Active Substance: UNSPECIFIED INGREDIENT
     Indication: IDIOPATHIC PULMONARY FIBROSIS
     Dosage: MOST RECENT DOSE PRIOR TO SERIOUS ADVERSE EVENT (SAE) ONSET ON 08/APR/ 2018.
     Route: 048
     Dates: start: 20180226
  5. PIRFENIDONE. [Suspect]
     Active Substance: PIRFENIDONE
     Indication: IDIOPATHIC PULMONARY FIBROSIS
     Dosage: MOST RECENT DOSE PRIOR TO SERIOUS ADVERSE EVENT (SAE) ONSET ON 08/APR/ 2018.2403 MG/DAY IN 3 DIVIDED
     Route: 048
     Dates: start: 20180205
  6. PARACETAMOL [Concomitant]
     Active Substance: ACETAMINOPHEN
     Indication: PAIN
     Route: 048
     Dates: end: 20180411
  7. OMEPRAZOL [Concomitant]
     Active Substance: OMEPRAZOLE
     Route: 048
  8. BUTRANS [Concomitant]
     Active Substance: BUPRENORPHINE
     Indication: ANALGESIC THERAPY
     Dosage: DE (TRANSDERMAL)
     Route: 065
     Dates: end: 20180403
  9. SOTALOL. [Concomitant]
     Active Substance: SOTALOL
     Indication: HYPERTENSION
     Route: 048
     Dates: end: 20180411
  10. OXAZEPAM. [Concomitant]
     Active Substance: OXAZEPAM
     Indication: ANXIETY
     Route: 048
     Dates: start: 20180404, end: 20180409
  11. TEMAZEPAM. [Concomitant]
     Active Substance: TEMAZEPAM
     Indication: ANXIETY
     Route: 048
     Dates: end: 20180411
  12. DABIGATRAN [Concomitant]
     Active Substance: DABIGATRAN
     Route: 048
  13. PRADAXA [Concomitant]
     Active Substance: DABIGATRAN ETEXILATE MESYLATE
     Route: 048
     Dates: end: 20180204
  14. OXAZEPAM. [Suspect]
     Active Substance: OXAZEPAM
     Indication: ANXIETY
     Route: 048
     Dates: start: 20180404, end: 20180409
  15. FENTANYL. [Suspect]
     Active Substance: FENTANYL
     Indication: PAIN
     Dosage: 12 UNIT
     Route: 062
     Dates: start: 20180404, end: 20180409

REACTIONS (2)
  - Respiratory failure [Not Recovered/Not Resolved]
  - Seizure [Fatal]

NARRATIVE: CASE EVENT DATE: 20180409
